FAERS Safety Report 7529849-3 (Version None)
Quarter: 2011Q2

REPORT INFORMATION
  Report Type: 
  Country: None (occurrence: None)
  Receive Date: 20110607
  Receipt Date: 20110127
  Transmission Date: 20111010
  Serious: Yes (Hospitalization)
  Sender: FDA-Public Use
  Company Number: US-BAYER-201013260NA

PATIENT
  Age: 18 Year
  Sex: Female
  Weight: 40.363 kg

DRUGS (8)
  1. ZANTAC [Concomitant]
  2. YASMIN [Suspect]
     Route: 048
     Dates: start: 20040101, end: 20090101
  3. PREVACID [Concomitant]
  4. VICODIN [Concomitant]
  5. PROMETHAZINE [Concomitant]
  6. PROZAC [Concomitant]
  7. CELEXA [Concomitant]
  8. WELLBUTRIN [Concomitant]

REACTIONS (5)
  - VOMITING [None]
  - ABDOMINAL PAIN UPPER [None]
  - NAUSEA [None]
  - CHOLECYSTITIS ACUTE [None]
  - GALLBLADDER NON-FUNCTIONING [None]
